FAERS Safety Report 9262837 (Version 1)
Quarter: 2013Q2

REPORT INFORMATION
  Report Type: Spontaneous
  Country: GB (occurrence: None)
  Receive Date: 20130426
  Receipt Date: 20130426
  Transmission Date: 20140414
  Serious: Yes (Other)
  Sender: FDA-Public Use
  Company Number: 1689355

PATIENT
  Age: 78 Year
  Sex: Female

DRUGS (4)
  1. GENTAMICIN SULFATE [Suspect]
     Indication: ANTIBIOTIC PROPHYLAXIS
  2. FLUCLOXACILLIN [Suspect]
     Indication: ANTIBIOTIC PROPHYLAXIS
     Route: 040
  3. EPHEDRINE [Concomitant]
  4. METARAMINOL [Concomitant]

REACTIONS (1)
  - Renal failure acute [None]
